FAERS Safety Report 12398222 (Version 1)
Quarter: 2016Q2

REPORT INFORMATION
  Report Type: Spontaneous
  Country: US (occurrence: None)
  Receive Date: 20160523
  Receipt Date: 20160523
  Transmission Date: 20160815
  Serious: Yes (Hospitalization)
  Sender: FDA-Public Use
  Company Number: None

PATIENT
  Age: 57 Year
  Sex: Female
  Weight: 46.4 kg

DRUGS (3)
  1. CISPLATIN. [Suspect]
     Active Substance: CISPLATIN
     Dates: end: 20160510
  2. XANAX [Concomitant]
     Active Substance: ALPRAZOLAM
  3. DILAUDID [Concomitant]
     Active Substance: HYDROMORPHONE HYDROCHLORIDE

REACTIONS (6)
  - Confusional state [None]
  - Visual impairment [None]
  - Drug abuse [None]
  - Laceration [None]
  - Vision blurred [None]
  - Syncope [None]

NARRATIVE: CASE EVENT DATE: 20160516
